FAERS Safety Report 8341118-0 (Version None)
Quarter: 2012Q2

REPORT INFORMATION
  Report Type: 
  Country: None (occurrence: None)
  Receive Date: 20120507
  Receipt Date: 20120313
  Transmission Date: 20120825
  Serious: Yes (Hospitalization)
  Sender: FDA-Public Use
  Company Number: FR-GLAXOSMITHKLINE-B0788914A

PATIENT
  Age: 42 Year
  Sex: Female
  Weight: 70 kg

DRUGS (5)
  1. GRANOCYTE [Concomitant]
  2. LAPATINIB [Suspect]
     Indication: BREAST CANCER METASTATIC
     Route: 048
     Dates: start: 20111203
  3. XELODA [Suspect]
     Indication: BREAST CANCER METASTATIC
     Route: 048
  4. FEMARA [Concomitant]
     Indication: BREAST CANCER METASTATIC
  5. ARANESP [Concomitant]

REACTIONS (1)
  - HYPERTENSION [None]
